FAERS Safety Report 20658672 (Version 1)
Quarter: 2022Q1

REPORT INFORMATION
  Report Type: Spontaneous
  Country: US (occurrence: None)
  Receive Date: 20220330
  Receipt Date: 20220330
  Transmission Date: 20220424
  Serious: Yes (Other)
  Sender: FDA-Public Use
  Company Number: None

PATIENT
  Age: 48 Year
  Sex: Male
  Weight: 77.85 kg

DRUGS (21)
  1. LENALIDOMIDE [Suspect]
     Active Substance: LENALIDOMIDE
     Indication: Plasma cell myeloma
     Dosage: FREQUENCY : DAILY;?
     Route: 048
     Dates: start: 20220310
  2. COD LIVER OIL [Concomitant]
     Active Substance: COD LIVER OIL
  3. DIETARY SUPPLEMENT\RESVERATROL [Concomitant]
     Active Substance: DIETARY SUPPLEMENT\RESVERATROL
  4. ALPHA LIPOIC ACID [Concomitant]
     Active Substance: .ALPHA.-LIPOIC ACID
  5. VITAMIN C [Concomitant]
     Active Substance: ASCORBIC ACID
  6. ZINC [Concomitant]
     Active Substance: ZINC
  7. MAGNESIUM [Concomitant]
     Active Substance: MAGNESIUM
  8. CREATINE [Concomitant]
     Active Substance: CREATINE
  9. ACYCLOVIR [Concomitant]
     Active Substance: ACYCLOVIR
  10. DEXAMETHASONE [Concomitant]
     Active Substance: DEXAMETHASONE
  11. ONDANSETRON [Concomitant]
     Active Substance: ONDANSETRON
  12. VITAMINS [Concomitant]
     Active Substance: VITAMINS
  13. MELOXICAM [Concomitant]
     Active Substance: MELOXICAM
  14. METHOCARBAMOL [Concomitant]
     Active Substance: METHOCARBAMOL
  15. ACETAMINOPHEN [Concomitant]
     Active Substance: ACETAMINOPHEN
  16. ASPIRIN [Concomitant]
     Active Substance: ASPIRIN
  17. VELCADE [Concomitant]
     Active Substance: BORTEZOMIB
  18. nystatin Cr [Concomitant]
  19. DARZALEX [Concomitant]
     Active Substance: DARATUMUMAB
  20. CALCIUM VITAMIN D3 [Concomitant]
  21. SODIUM BICARBONATE [Concomitant]
     Active Substance: SODIUM BICARBONATE

REACTIONS (5)
  - Rash [None]
  - Rash [None]
  - Dry skin [None]
  - Asthenia [None]
  - Eye pruritus [None]

NARRATIVE: CASE EVENT DATE: 20220330
